FAERS Safety Report 9243099 (Version 1)
Quarter: 2013Q2

REPORT INFORMATION
  Report Type: Spontaneous
  Country: FR (occurrence: FR)
  Receive Date: 20130419
  Receipt Date: 20130419
  Transmission Date: 20140414
  Serious: Yes (Other)
  Sender: FDA-Public Use
  Company Number: FR-VERTEX PHARMACEUTICALS INC.-2013-002796

PATIENT
  Age: 38 Year
  Sex: Male
  Weight: 85 kg

DRUGS (5)
  1. INCIVO [Suspect]
     Indication: HEPATITIS C
     Dosage: 750 MG, TID
     Route: 048
     Dates: start: 20120619, end: 20121209
  2. BOCEPREVIR [Concomitant]
     Indication: HEPATITIS C
     Dosage: DOSAGE FORM: UNKNOWN
     Route: 065
  3. PEGASYS [Concomitant]
     Indication: HEPATITIS C
     Dosage: DOSAGE FORM: UNKNOWN
     Route: 058
     Dates: start: 20120121, end: 20121203
  4. COPEGUS [Concomitant]
     Indication: HEPATITIS C
     Dosage: DOSAGE FORM: UNKNOWN
     Route: 048
     Dates: start: 20120221, end: 20121209
  5. COPEGUS [Concomitant]
     Dosage: DOSAGE FORM: UNKNOWN
     Route: 048
     Dates: start: 20120121, end: 20120221

REACTIONS (3)
  - Acute generalised exanthematous pustulosis [Recovered/Resolved]
  - Prurigo [Recovered/Resolved]
  - Intentional drug misuse [Unknown]
